FAERS Safety Report 7769943-5 (Version None)
Quarter: 2011Q3

REPORT INFORMATION
  Report Type: 
  Country: None (occurrence: None)
  Receive Date: 20110922
  Receipt Date: 20110916
  Transmission Date: 20111222
  Serious: Yes (Death)
  Sender: FDA-Public Use
  Company Number: US-GLAXOSMITHKLINE-A0939800A

PATIENT
  Age: 69 Year
  Sex: Female

DRUGS (23)
  1. FLEETS ENEMA [Concomitant]
     Route: 054
  2. EFUDEX [Concomitant]
     Route: 061
  3. IMMUNE GLOBULIN INTRAVENOUS (HUMAN) [Concomitant]
     Indication: THROMBOCYTOPENIA
  4. MILK OF MAGNESIA TAB [Concomitant]
     Route: 048
  5. UNKNOWN MEDICATION [Concomitant]
     Dosage: 10MG AS REQUIRED
     Route: 054
  6. LISINOPRIL [Concomitant]
     Dosage: 5MG PER DAY
     Route: 048
  7. PREDNISONE [Concomitant]
     Route: 048
  8. MAGNESIUM [Concomitant]
     Dosage: 400MG PER DAY
     Route: 048
  9. NAMENDA [Concomitant]
     Dosage: 10MG TWICE PER DAY
     Route: 048
  10. PROMACTA [Suspect]
     Indication: THROMBOCYTOPENIA
     Dosage: 50MG PER DAY
     Route: 048
     Dates: start: 20110502
  11. GALANTAMINE HYDROBROMIDE [Concomitant]
     Dosage: 8MG TWICE PER DAY
     Route: 048
  12. NITROFURANTOIN MACROCRYSTAL [Concomitant]
     Dosage: 100MG TWICE PER DAY
     Route: 048
  13. OMEPRAZOLE [Concomitant]
     Dosage: 20MG PER DAY
     Route: 048
  14. FUROSEMIDE [Concomitant]
     Dosage: 20MG TWICE PER DAY
     Route: 048
  15. CORTICOSTEROIDS [Concomitant]
     Indication: THROMBOCYTOPENIA
  16. CARVEDILOL [Concomitant]
     Dosage: 12.5MG TWICE PER DAY
     Route: 048
  17. LOVASTATIN [Concomitant]
     Dosage: 40MG PER DAY
     Route: 048
  18. SPIRONOLACTONE [Concomitant]
     Dosage: 25MG PER DAY
     Route: 048
  19. ACETAMINOPHEN [Concomitant]
     Route: 048
  20. GLIPIZIDE [Concomitant]
     Dosage: 5MG TWICE PER DAY
     Route: 048
  21. LEVOTHROID [Concomitant]
     Dosage: 75MCG PER DAY
     Route: 048
  22. SEROQUEL [Concomitant]
     Dosage: 50MG PER DAY
     Route: 048
  23. ALBUTEROL SULFATE [Concomitant]
     Route: 055

REACTIONS (1)
  - DEATH [None]
